FAERS Safety Report 7006121-1 (Version None)
Quarter: 2010Q3

REPORT INFORMATION
  Report Type: 
  Country: None (occurrence: None)
  Receive Date: 20100921
  Receipt Date: 20100909
  Transmission Date: 20110219
  Serious: Yes (Hospitalization)
  Sender: FDA-Public Use
  Company Number: FR-PFIZER INC-2010113913

PATIENT
  Age: 72 Year
  Sex: Male

DRUGS (7)
  1. TRIFLUCAN [Suspect]
     Dosage: 100 MG, 1X/DAY
     Route: 048
     Dates: start: 20100611, end: 20100618
  2. REVLIMID [Suspect]
     Indication: MULTIPLE MYELOMA
     Dosage: 25 MG, 1X/DAY, 3 WEEKS OUT OF 4
     Route: 048
     Dates: start: 20090701, end: 20100619
  3. CORDARONE [Suspect]
     Indication: ATRIAL FIBRILLATION
     Dosage: 1 DF, 1X/DAY
     Route: 048
     Dates: start: 20100611, end: 20100619
  4. ROCEPHIN [Suspect]
     Indication: LUNG DISORDER
     Dosage: 1 G, 1X/DAY
     Route: 042
     Dates: start: 20100607, end: 20100619
  5. TAVANIC [Suspect]
     Dosage: UNK
     Route: 042
     Dates: start: 20100607, end: 20100617
  6. ASPEGIC 1000 [Concomitant]
     Dosage: 250 MG, 1X/DAY
     Route: 048
     Dates: end: 20100620
  7. LOVENOX [Concomitant]
     Indication: ATRIAL FIBRILLATION
     Dosage: UNK
     Dates: start: 20100611

REACTIONS (1)
  - PANCYTOPENIA [None]
